FAERS Safety Report 12923826 (Version 2)
Quarter: 2016Q4

REPORT INFORMATION
  Report Type: Spontaneous
  Country: FR (occurrence: FR)
  Receive Date: 20161108
  Receipt Date: 20161209
  Transmission Date: 20170207
  Serious: Yes (Death, Life-Threatening)
  Sender: FDA-Public Use
  Company Number: FR-GUERBET LLC-1059352

PATIENT
  Age: 66 Year
  Sex: Male

DRUGS (4)
  1. DOXORUBICIN HYDROCHLORIDE. [Suspect]
     Active Substance: DOXORUBICIN HYDROCHLORIDE
     Route: 041
     Dates: start: 20160817
  2. LIPIODOL [Suspect]
     Active Substance: ETHIODIZED OIL
     Indication: THERAPEUTIC EMBOLISATION
     Route: 013
     Dates: start: 20160817, end: 20160817
  3. IOMEPROL [Suspect]
     Active Substance: IOMEPROL
     Route: 013
     Dates: start: 20160817, end: 20160817
  4. CURASPON [Concomitant]
     Dates: start: 20160817, end: 20160817

REACTIONS (3)
  - Pyrexia [Unknown]
  - Cardio-respiratory arrest [Fatal]
  - Tachypnoea [Unknown]

NARRATIVE: CASE EVENT DATE: 20160818
